FAERS Safety Report 4426095-7 (Version None)
Quarter: 2004Q3

REPORT INFORMATION
  Report Type: 
  Country: None (occurrence: None)
  Receive Date: 20040811
  Receipt Date: 20040729
  Transmission Date: 20050211
  Serious: Yes (Hospitalization, Other)
  Sender: FDA-Public Use
  Company Number: HQWYE595229JUL04

PATIENT
  Age: 5 Year
  Sex: Male

DRUGS (4)
  1. ADVIL [Suspect]
     Indication: EAR PAIN
     Dosage: 1 DOSE/KG EVERY 6 HOURS ORAL
     Route: 048
     Dates: start: 20040705
  2. ADVIL [Suspect]
     Indication: PYREXIA
     Dosage: 1 DOSE/KG EVERY 6 HOURS ORAL
     Route: 048
     Dates: start: 20040705
  3. PANOTILE (FLUDROCORTISONE ACETATE/LIDOCAINE HYDROCHLORIDE/NEOMYCIN SUL [Concomitant]
  4. ACETAMINOPHEN [Concomitant]

REACTIONS (6)
  - CELLULITIS [None]
  - CONDITION AGGRAVATED [None]
  - LYMPHADENITIS [None]
  - NUCHAL RIGIDITY [None]
  - PAROTID ABSCESS [None]
  - RHINOLARYNGITIS [None]
